FAERS Safety Report 5725888-3 (Version None)
Quarter: 2008Q2

REPORT INFORMATION
  Report Type: 
  Country: None (occurrence: None)
  Receive Date: 20080502
  Receipt Date: 20080424
  Transmission Date: 20081010
  Serious: Yes (Death)
  Sender: FDA-Public Use
  Company Number: GB-RANBAXY-2008RR-14677

PATIENT

DRUGS (1)
  1. CO-AMOXICLAV 250/125 MG TABLETS [Suspect]

REACTIONS (4)
  - CARDIAC ARREST [None]
  - CHOLESTASIS [None]
  - HAEMORRHAGE [None]
  - JAUNDICE [None]
